FAERS Safety Report 15610349 (Version 2)
Quarter: 2018Q4

REPORT INFORMATION
  Report Type: Spontaneous
  Country: DE (occurrence: DE)
  Receive Date: 20181113
  Receipt Date: 20181120
  Transmission Date: 20190205
  Serious: Yes (Other)
  Sender: FDA-Public Use
  Company Number: DE-009507513-1811DEU002517

PATIENT
  Age: 67 Year
  Sex: Female

DRUGS (6)
  1. KEYTRUDA [Suspect]
     Active Substance: PEMBROLIZUMAB
     Dosage: 150 MILLIGRAM, EVERY 3 WEEKS
     Dates: start: 20181108
  2. NOVALGIN (ACETAMINOPHEN (+) CAFFEINE (+) PROPYPHENAZONE) [Concomitant]
     Active Substance: ACETAMINOPHEN\CAFFEINE\PROPYPHENAZONE
     Dosage: 2 DOSAGE FORM TWICE A DAY
  3. BERODUAL [Concomitant]
     Active Substance: FENOTEROL HYDROBROMIDE\IPRATROPIUM BROMIDE
     Dosage: 3X2 PUFFS A DAY
  4. EUTHYROX [Concomitant]
     Active Substance: LEVOTHYROXINE SODIUM
     Dosage: 1 DOSAGE FORM ONCE A DAY
  5. KEYTRUDA [Suspect]
     Active Substance: PEMBROLIZUMAB
     Indication: NON-SMALL CELL LUNG CANCER
     Dosage: 150 MILLIGRAM, EVERY 3 WEEKS
     Dates: start: 201807, end: 201809
  6. PANTOZOL [Concomitant]
     Active Substance: PANTOPRAZOLE SODIUM
     Dosage: 1 DOSAGE FORM ONCE A DAY

REACTIONS (1)
  - Leukopenia [Unknown]

NARRATIVE: CASE EVENT DATE: 20180907
